FAERS Safety Report 4287040-0 (Version None)
Quarter: 2004Q1

REPORT INFORMATION
  Report Type: 
  Country: None (occurrence: None)
  Receive Date: 20040204
  Receipt Date: 20040126
  Transmission Date: 20041129
  Serious: Yes (Death, Life-Threatening)
  Sender: FDA-Public Use
  Company Number: 01P-056-0102083-00

PATIENT
  Age: 53 Year
  Sex: Male

DRUGS (6)
  1. NORVIR [Suspect]
     Indication: HIV INFECTION
     Dosage: 400 MG, 1 IN 1 D, PER ORAL
     Route: 048
     Dates: start: 19991201, end: 20001207
  2. INDINAVIR [Suspect]
     Indication: HIV INFECTION
     Dosage: 1600 M G,  1IN 1 D, PER ORAL
     Route: 048
     Dates: start: 19991201, end: 20001207
  3. STAVUDINE [Suspect]
     Indication: HIV INFECTION
     Dosage: PER ORAL
     Route: 048
     Dates: start: 19991201, end: 20001207
  4. EFAVIRENZ [Suspect]
     Indication: HIV INFECTION
     Dosage: 600 MG, 1 IN 1 D, PER ORAL
     Route: 048
     Dates: start: 19991201, end: 20001207
  5. PRISTINAMYCIN [Concomitant]
     Dosage: 1500 MG, 1 IN 1 D, PER ORAL
     Route: 048
     Dates: start: 20001115, end: 20001206
  6. FUSIDIC ACID [Suspect]
     Dosage: 1500 MG, 1 IN 1 D, PER ORAL
     Route: 048
     Dates: start: 20001115, end: 20001207

REACTIONS (20)
  - ANURIA [None]
  - ARTHRITIS [None]
  - BLOOD DISORDER [None]
  - BLOOD PRESSURE DECREASED [None]
  - CANDIDIASIS [None]
  - CARDIAC DISORDER [None]
  - CARDIO-RESPIRATORY ARREST [None]
  - DIALYSIS [None]
  - DIARRHOEA [None]
  - HAEMODYNAMIC INSTABILITY [None]
  - LACTIC ACIDOSIS [None]
  - PANCREATITIS ACUTE [None]
  - PURULENT DISCHARGE [None]
  - PYREXIA [None]
  - RASH [None]
  - RENAL FAILURE ACUTE [None]
  - SEPSIS [None]
  - SINUS BRADYCARDIA [None]
  - TACHYCARDIA [None]
  - WEIGHT DECREASED [None]
